FAERS Safety Report 4550284-4 (Version None)
Quarter: 2004Q4

REPORT INFORMATION
  Report Type: 
  Country: None (occurrence: None)
  Receive Date: 20041227
  Receipt Date: 20041110
  Transmission Date: 20050328
  Serious: No
  Sender: FDA-Public Use
  Company Number: 04P-163-0280408-00

PATIENT
  Age: 67 Year
  Sex: Female
  Weight: 68.0396 kg

DRUGS (9)
  1. HUMIRA [Suspect]
     Indication: RHEUMATOID ARTHRITIS
     Dosage: 40 MG, 1 IN 1 D, SUBCUTANEOUS
     Route: 058
     Dates: start: 20030701
  2. METHOTREXATE SODIUM [Concomitant]
  3. BENICAR [Concomitant]
  4. FOLIC ACID [Concomitant]
  5. AMLODIPINE BESYLATE [Concomitant]
  6. ACETYLSALICYLIC ACID SRT [Concomitant]
  7. METOPROLOL SUCCINATE [Concomitant]
  8. PANTOPRAZOLE [Concomitant]
  9. MELOXICAM [Concomitant]

REACTIONS (1)
  - HERPES ZOSTER [None]
